FAERS Safety Report 7619115-X (Version None)
Quarter: 2011Q3

REPORT INFORMATION
  Report Type: 
  Country: None (occurrence: None)
  Receive Date: 20110718
  Receipt Date: 20110712
  Transmission Date: 20111222
  Serious: Yes (Other)
  Sender: FDA-Public Use
  Company Number: CN-ASTRAZENECA-2011SE41155

PATIENT
  Age: 30 Year
  Sex: Female

DRUGS (1)
  1. LIDOCAINE [Suspect]
     Indication: LOCAL ANAESTHESIA
     Dosage: 5 ML
     Route: 053

REACTIONS (8)
  - EXTRASYSTOLES [None]
  - DYSPNOEA [None]
  - ARRHYTHMIA [None]
  - PERIPHERAL COLDNESS [None]
  - CYANOSIS [None]
  - CHOKING SENSATION [None]
  - CONGENITAL HAND MALFORMATION [None]
  - MUSCULAR WEAKNESS [None]
